FAERS Safety Report 4932998-7 (Version None)
Quarter: 2006Q1

REPORT INFORMATION
  Report Type: 
  Country: None (occurrence: None)
  Receive Date: 20060302
  Receipt Date: 20060302
  Transmission Date: 20060701
  Serious: Yes (Death)
  Sender: FDA-Public Use
  Company Number: None

PATIENT
  Age: 24 Year
  Sex: Male
  Weight: 96.1626 kg

DRUGS (2)
  1. LEVOFLOXACIN [Suspect]
     Indication: DRUG THERAPY
     Route: 065
  2. METRONIDAZOLE [Suspect]
     Indication: DRUG THERAPY
     Route: 065

REACTIONS (2)
  - STEVENS-JOHNSON SYNDROME [None]
  - TOXIC EPIDERMAL NECROLYSIS [None]
